FAERS Safety Report 14597564 (Version 1)
Quarter: 2018Q1

REPORT INFORMATION
  Report Type: Spontaneous
  Country: US (occurrence: US)
  Receive Date: 20180305
  Receipt Date: 20180305
  Transmission Date: 20180509
  Serious: Yes (Hospitalization, Other)
  Sender: FDA-Public Use
  Company Number: US-ZYDUS-019163

PATIENT
  Age: 67 Year
  Sex: Male

DRUGS (6)
  1. GLIPIZIDE. [Concomitant]
     Active Substance: GLIPIZIDE
     Indication: PRODUCT USED FOR UNKNOWN INDICATION
     Route: 065
  2. SIMVASTATIN. [Concomitant]
     Active Substance: SIMVASTATIN
     Indication: PRODUCT USED FOR UNKNOWN INDICATION
     Route: 065
  3. METFORMIN [Suspect]
     Active Substance: METFORMIN HYDROCHLORIDE
     Indication: PRODUCT USED FOR UNKNOWN INDICATION
     Route: 065
  4. LISINOPRIL. [Concomitant]
     Active Substance: LISINOPRIL
     Indication: PRODUCT USED FOR UNKNOWN INDICATION
     Route: 065
  5. CARVEDILOL/CARVEDILOL HYDROCHLODRIDE [Concomitant]
     Indication: PRODUCT USED FOR UNKNOWN INDICATION
     Route: 065
  6. LEVOTHYROXINE. [Concomitant]
     Active Substance: LEVOTHYROXINE
     Indication: PRODUCT USED FOR UNKNOWN INDICATION
     Route: 065

REACTIONS (13)
  - Shock [Recovered/Resolved]
  - Respiratory distress [Recovered/Resolved]
  - Gastrointestinal sounds abnormal [Recovered/Resolved]
  - Abdominal pain [Recovered/Resolved]
  - Abdominal rigidity [Recovered/Resolved]
  - Abdominal tenderness [Recovered/Resolved]
  - Lactic acidosis [Recovered/Resolved]
  - Livedo reticularis [Recovered/Resolved]
  - Hyperkalaemia [Recovered/Resolved]
  - Diarrhoea haemorrhagic [Recovered/Resolved]
  - Acute kidney injury [Recovered/Resolved]
  - Cold sweat [Recovered/Resolved]
  - Acute abdomen [Recovered/Resolved]
